FAERS Safety Report 16865359 (Version 1)
Quarter: 2019Q3

REPORT INFORMATION
  Report Type: Spontaneous
  Country: US (occurrence: US)
  Receive Date: 20190930
  Receipt Date: 20190930
  Transmission Date: 20191005
  Serious: No
  Sender: FDA-Public Use
  Company Number: US-009507513-1909USA011948

PATIENT
  Age: 72 Year
  Sex: Male

DRUGS (1)
  1. PROVENTIL [Suspect]
     Active Substance: ALBUTEROL
     Indication: INHALATION THERAPY
     Dosage: 1 TO 2 PUFFS EVERY 2 TO 3 HOURS AS NEEDED
     Dates: start: 20190628

REACTIONS (4)
  - Product dose omission [Unknown]
  - Product dose omission [Unknown]
  - Poor quality device used [Unknown]
  - Product quality issue [Unknown]

NARRATIVE: CASE EVENT DATE: 2019
